FAERS Safety Report 7023563-9 (Version None)
Quarter: 2010Q3

REPORT INFORMATION
  Report Type: 
  Country: None (occurrence: None)
  Receive Date: 20100929
  Receipt Date: 20100929
  Transmission Date: 20110219
  Serious: Yes (Disabling)
  Sender: FDA-Public Use
  Company Number: None

PATIENT
  Age: 60 Year
  Sex: Female
  Weight: 81.6475 kg

DRUGS (8)
  1. SUPARTZ 25MG/2.5ML SYRINGE [Suspect]
     Indication: ARTHRITIS
     Dosage: 25MG/2.5ML SYRINGE 10 SHOTS 10 WEEKS
     Dates: start: 20090430
  2. SUPARTZ 25MG/2.5ML SYRINGE [Suspect]
     Indication: ARTHRITIS
     Dosage: 25MG/2.5ML SYRINGE 10 SHOTS 10 WEEKS
     Dates: start: 20090506
  3. SUPARTZ 25MG/2.5ML SYRINGE [Suspect]
     Indication: ARTHRITIS
     Dosage: 25MG/2.5ML SYRINGE 10 SHOTS 10 WEEKS
     Dates: start: 20090506
  4. SUPARTZ 25MG/2.5ML SYRINGE [Suspect]
     Indication: ARTHRITIS
     Dosage: 25MG/2.5ML SYRINGE 10 SHOTS 10 WEEKS
     Dates: start: 20090513
  5. SUPARTZ 25MG/2.5ML SYRINGE [Suspect]
     Indication: ARTHRITIS
     Dosage: 25MG/2.5ML SYRINGE 10 SHOTS 10 WEEKS
     Dates: start: 20090520
  6. SUPARTZ 25MG/2.5ML SYRINGE [Suspect]
     Indication: ARTHRITIS
     Dosage: 25MG/2.5ML SYRINGE 10 SHOTS 10 WEEKS
     Dates: start: 20090527
  7. SUPARTZ 25MG/2.5ML SYRINGE [Suspect]
     Indication: ARTHRITIS
     Dosage: 25MG/2.5ML SYRINGE 10 SHOTS 10 WEEKS
     Dates: start: 20090602
  8. SUPARTZ 25MG/2.5ML SYRINGE [Suspect]
     Indication: ARTHRITIS
     Dosage: 25MG/2.5ML SYRINGE 10 SHOTS 10 WEEKS
     Dates: start: 20090609

REACTIONS (3)
  - ARTHRALGIA [None]
  - GAIT DISTURBANCE [None]
  - WALKING AID USER [None]
